FAERS Safety Report 9415624 (Version 1)
Quarter: 2013Q3

REPORT INFORMATION
  Report Type: Spontaneous
  Country: US (occurrence: US)
  Receive Date: 20130723
  Receipt Date: 20130723
  Transmission Date: 20140515
  Serious: Yes (Death, Hospitalization)
  Sender: FDA-Public Use
  Company Number: US-UCBSA-091771

PATIENT
  Age: 32 Year
  Sex: Male
  Weight: 59 kg

DRUGS (1)
  1. CIMZIA [Suspect]
     Indication: CROHN^S DISEASE
     Dosage: 400 MG AT WEEK 0 2 AND 4 THEN WAS SCHEDULED TO BE 200 MG ONCE IN 2 WEEKS, TOTAL 3 OR 4 DOSES
     Route: 058
     Dates: start: 201303, end: 201305

REACTIONS (4)
  - Death [Fatal]
  - Tuberculosis [Unknown]
  - Surgery [Unknown]
  - Pyrexia [Unknown]
